FAERS Safety Report 7518836-7 (Version None)
Quarter: 2011Q2

REPORT INFORMATION
  Report Type: 
  Country: None (occurrence: None)
  Receive Date: 20110523
  Receipt Date: 20110509
  Transmission Date: 20111010
  Serious: Yes (Hospitalization, Other)
  Sender: FDA-Public Use
  Company Number: 2011MA005699

PATIENT
  Age: 48 Year
  Sex: Female

DRUGS (2)
  1. IOPAMIDOL [Concomitant]
  2. PHENYTOIN [Suspect]
     Indication: STATUS EPILEPTICUS
     Dosage: 1250 MG; 1X; IV
     Route: 042

REACTIONS (2)
  - RESPIRATORY ARREST [None]
  - INFUSION RELATED REACTION [None]
